FAERS Safety Report 10568600 (Version 1)
Quarter: 2014Q4

REPORT INFORMATION
  Report Type: Spontaneous
  Country: US (occurrence: US)
  Receive Date: 20141106
  Receipt Date: 20141106
  Transmission Date: 20150529
  Serious: Yes (Other)
  Sender: FDA-Public Use
  Company Number: US-SA-2014SA150018

PATIENT
  Sex: Male

DRUGS (10)
  1. ELIQUIS [Suspect]
     Active Substance: APIXABAN
     Route: 065
     Dates: start: 2012
  2. NORVASC [Concomitant]
     Active Substance: AMLODIPINE BESYLATE
  3. TAMSULOSIN HYDROCHLORIDE. [Concomitant]
     Active Substance: TAMSULOSIN HYDROCHLORIDE
  4. HYDROCHLOROTHIAZIDE. [Concomitant]
     Active Substance: HYDROCHLOROTHIAZIDE
  5. PLAVIX [Suspect]
     Active Substance: CLOPIDOGREL BISULFATE
     Route: 065
     Dates: start: 2000
  6. LEVOTHYROXINE [Concomitant]
     Active Substance: LEVOTHYROXINE
  7. ISOSORBIDE DINITRATE. [Concomitant]
     Active Substance: ISOSORBIDE DINITRATE
  8. SIMVASTATIN. [Concomitant]
     Active Substance: SIMVASTATIN
     Indication: BLOOD CHOLESTEROL
  9. ASPIRIN. [Concomitant]
     Active Substance: ASPIRIN
  10. LASIX [Concomitant]
     Active Substance: FUROSEMIDE
     Indication: PAIN IN EXTREMITY

REACTIONS (5)
  - Arthralgia [Unknown]
  - Dysstasia [Unknown]
  - Back pain [Unknown]
  - Atrial fibrillation [Unknown]
  - Gait disturbance [Unknown]
